FAERS Safety Report 18514181 (Version 1)
Quarter: 2020Q4

REPORT INFORMATION
  Report Type: Spontaneous
  Country: US (occurrence: US)
  Receive Date: 20201118
  Receipt Date: 20201118
  Transmission Date: 20210114
  Serious: No
  Sender: FDA-Public Use
  Company Number: US-ALLERGAN-2029857US

PATIENT
  Age: 87 Year
  Sex: Female

DRUGS (2)
  1. ALPHAGAN P [Suspect]
     Active Substance: BRIMONIDINE TARTRATE
     Indication: GLAUCOMA
     Dosage: UNK
     Route: 047
     Dates: start: 20200728, end: 20200728
  2. LATANOPROST. [Suspect]
     Active Substance: LATANOPROST
     Indication: INTRAOCULAR PRESSURE INCREASED
     Dosage: UNK
     Route: 047
     Dates: start: 20200722

REACTIONS (15)
  - Swelling of eyelid [Unknown]
  - Asthenia [Unknown]
  - Eye pruritus [Unknown]
  - Cough [Unknown]
  - Somnolence [Unknown]
  - Oropharyngeal pain [Unknown]
  - Hyperaesthesia [Unknown]
  - Dizziness [Unknown]
  - Malaise [Unknown]
  - Lacrimation increased [Unknown]
  - Fatigue [Unknown]
  - Hypotension [Recovered/Resolved]
  - Poor quality sleep [Unknown]
  - Ocular hyperaemia [Unknown]
  - Rash [Unknown]

NARRATIVE: CASE EVENT DATE: 202008
